FAERS Safety Report 5062154-6 (Version None)
Quarter: 2006Q3

REPORT INFORMATION
  Report Type: 
  Country: None (occurrence: None)
  Receive Date: 20060726
  Receipt Date: 20060718
  Transmission Date: 20061208
  Serious: Yes (Other)
  Sender: FDA-Public Use
  Company Number: PHBS2006ZA10817

PATIENT
  Sex: Female

DRUGS (1)
  1. TRILEPTAL [Suspect]
     Route: 065

REACTIONS (5)
  - BLOOD OSMOLARITY ABNORMAL [None]
  - BLOOD SODIUM DECREASED [None]
  - HYPONATRAEMIA [None]
  - INAPPROPRIATE ANTIDIURETIC HORMONE SECRETION [None]
  - URINE OSMOLARITY INCREASED [None]
